APPROVED DRUG PRODUCT: ROFLUMILAST
Active Ingredient: ROFLUMILAST
Strength: 250MCG
Dosage Form/Route: TABLET;ORAL
Application: A208256 | Product #001 | TE Code: AB
Applicant: MSN LABORATORIES PRIVATE LTD
Approved: Sep 7, 2022 | RLD: No | RS: No | Type: RX